FAERS Safety Report 18061724 (Version 1)
Quarter: 2020Q3

REPORT INFORMATION
  Report Type: Report from Study
  Country: US (occurrence: US)
  Receive Date: 20200723
  Receipt Date: 20200723
  Transmission Date: 20201103
  Serious: Yes (Death, Hospitalization)
  Sender: FDA-Public Use
  Company Number: US-SAOL THERAPEUTICS-2020SAO00215

PATIENT
  Age: 59 Year
  Sex: Male

DRUGS (1)
  1. LIORESAL [Suspect]
     Active Substance: BACLOFEN
     Indication: MUSCLE SPASTICITY
     Dosage: 959.3 ?G, \DAY FLEX
     Route: 037

REACTIONS (6)
  - Procedural complication [Fatal]
  - Brain stem haemorrhage [None]
  - Muscle rigidity [Recovered/Resolved]
  - Loss of consciousness [Recovered/Resolved]
  - Cardiac operation [Fatal]
  - Subdural haemorrhage [None]

NARRATIVE: CASE EVENT DATE: 20100223
